FAERS Safety Report 8677554 (Version 11)
Quarter: 2014Q4

REPORT INFORMATION
  Report Type: Spontaneous
  Country: US (occurrence: US)
  Receive Date: 20120723
  Receipt Date: 20141016
  Transmission Date: 20150529
  Serious: Yes (Life-Threatening, Hospitalization, Congenital Anomaly, Other)
  Sender: FDA-Public Use
  Company Number: US-PFIZER INC-2012173616

PATIENT
  Sex: Male
  Weight: 3.86 kg

DRUGS (6)
  1. ZOLOFT [Suspect]
     Active Substance: SERTRALINE HYDROCHLORIDE
     Dosage: UNK
     Route: 064
  2. TYLENOL PM [Concomitant]
     Active Substance: ACETAMINOPHEN\DIPHENHYDRAMINE
     Dosage: UNK
     Route: 064
     Dates: start: 20020705
  3. PAXIL [Concomitant]
     Active Substance: PAROXETINE HYDROCHLORIDE
     Dosage: UNK
     Route: 064
  4. ZOLOFT [Suspect]
     Active Substance: SERTRALINE HYDROCHLORIDE
     Dosage: 25 MG, 1X/DAY
     Route: 064
     Dates: start: 20020315
  5. PRENATAL VITAMINS [Concomitant]
     Active Substance: VITAMINS
     Dosage: 25 MG, 2X/DAY
     Route: 064
     Dates: start: 20020320
  6. PRENATAL VITAMINS [Concomitant]
     Active Substance: VITAMINS
     Dosage: UNK (ONCE DAILY)
     Route: 064
     Dates: start: 20020705

REACTIONS (9)
  - Heart disease congenital [Not Recovered/Not Resolved]
  - Ventricular septal defect [Unknown]
  - Maternal exposure timing unspecified [Not Recovered/Not Resolved]
  - Transposition of the great vessels [Unknown]
  - Heart disease congenital [Unknown]
  - Atrial septal defect [Unknown]
  - Patent ductus arteriosus [Unknown]
  - Atrial septal defect [Unknown]
  - Pulmonary artery atresia [Unknown]

NARRATIVE: CASE EVENT DATE: 20020922
